FAERS Safety Report 13748938 (Version 3)
Quarter: 2021Q2

REPORT INFORMATION
  Report Type: Spontaneous
  Country: US (occurrence: US)
  Receive Date: 20170713
  Receipt Date: 20210430
  Transmission Date: 20210716
  Serious: Yes (Life-Threatening)
  Sender: FDA-Public Use
  Company Number: US-SUN PHARMACEUTICAL INDUSTRIES LTD-2017US-145298

PATIENT
  Age: 56 Year
  Sex: Female
  Weight: 104.8 kg

DRUGS (4)
  1. MIDAZOLAM. [Suspect]
     Active Substance: MIDAZOLAM
     Indication: STATUS EPILEPTICUS
     Dosage: 10 MG
     Route: 042
  2. MIDAZOLAM. [Suspect]
     Active Substance: MIDAZOLAM
     Dosage: 10 MG/H (0.1 MG/KG PER HOUR) WITH TITRATION TO 20 MG/H (0.2 MG/KG PER HOUR, TOTALING 50 MG)
     Route: 041
  3. LEVETIRACETAM. [Concomitant]
     Active Substance: LEVETIRACETAM
     Indication: STATUS EPILEPTICUS
     Dosage: 2 G, BID
     Route: 042
  4. MIDAZOLAM. [Suspect]
     Active Substance: MIDAZOLAM
     Dosage: MULTIPLE BOLUS
     Route: 040

REACTIONS (1)
  - Drug ineffective [Recovering/Resolving]
